FAERS Safety Report 9060183 (Version 1)
Quarter: 2013Q1

REPORT INFORMATION
  Report Type: Spontaneous
  Country: US (occurrence: None)
  Receive Date: 20130206
  Receipt Date: 20130206
  Transmission Date: 20140127
  Serious: Yes (Life-Threatening, Hospitalization)
  Sender: FDA-Public Use
  Company Number: None

PATIENT
  Age: 73 Year
  Sex: Female
  Weight: 61 kg

DRUGS (1)
  1. RIVAROXABAN [Suspect]
     Route: 048
     Dates: start: 20121216

REACTIONS (4)
  - Subarachnoid haemorrhage [None]
  - Brain herniation [None]
  - Nervous system disorder [None]
  - Respiratory disorder [None]
